FAERS Safety Report 10259543 (Version 1)
Quarter: 2014Q2

REPORT INFORMATION
  Report Type: Spontaneous
  Country: US (occurrence: US)
  Receive Date: 20140625
  Receipt Date: 20140625
  Transmission Date: 20141212
  Serious: No
  Sender: FDA-Public Use
  Company Number: US-ASTELLAS-2014US003938

PATIENT
  Age: 63 Year
  Sex: Female

DRUGS (1)
  1. VESICARE [Suspect]
     Indication: POLLAKIURIA
     Route: 048
     Dates: start: 20140410, end: 20140411

REACTIONS (10)
  - Malaise [Unknown]
  - Glossodynia [Unknown]
  - Oral discomfort [Unknown]
  - Vulvovaginal burning sensation [Unknown]
  - Vulvovaginal pain [Unknown]
  - Flushing [Unknown]
  - Dizziness [Unknown]
  - Dry mouth [Unknown]
  - Lip dry [Unknown]
  - Tongue dry [Unknown]
